FAERS Safety Report 11768689 (Version 3)
Quarter: 2015Q4

REPORT INFORMATION
  Report Type: Spontaneous
  Country: DK (occurrence: DK)
  Receive Date: 20151123
  Receipt Date: 20151221
  Transmission Date: 20160304
  Serious: Yes (Death, Life-Threatening, Other)
  Sender: FDA-Public Use
  Company Number: DK-PFIZER INC-2015398465

PATIENT
  Age: 43 Year
  Sex: Male
  Weight: 120 kg

DRUGS (8)
  1. BACLOFEN. [Suspect]
     Active Substance: BACLOFEN
     Indication: MUSCLE SPASTICITY
     Dosage: 25 MG (FIVE TIMES A DAY)
     Route: 048
     Dates: start: 20150611
  2. PANTOPRAZOLE [Concomitant]
     Active Substance: PANTOPRAZOLE SODIUM
     Indication: DYSPEPSIA
     Dosage: 20 MG, 1X/DAY
     Route: 048
  3. DIAZEPAM. [Suspect]
     Active Substance: DIAZEPAM
     Dosage: UNK
     Route: 065
  4. ACETYLSALICYLIC ACID [Concomitant]
     Active Substance: ASPIRIN
     Dosage: 5 MG, DAILY
     Route: 048
  5. CEFTRIAXONE. [Suspect]
     Active Substance: CEFTRIAXONE
     Indication: SEPSIS
     Dosage: 4 G, UNK
     Route: 042
     Dates: start: 20150611
  6. LIORESAL [Suspect]
     Active Substance: BACLOFEN
     Indication: MUSCLE SPASTICITY
     Dosage: 125 UG, DAILY
     Route: 037
     Dates: start: 1995
  7. LAXOBERAL [Concomitant]
     Active Substance: SODIUM PICOSULFATE
     Indication: DYSPEPSIA
     Dosage: UNK
     Route: 048
  8. MAGNESIA /00123201/ [Concomitant]
     Active Substance: MAGNESIUM HYDROXIDE
     Indication: DYSPEPSIA
     Dosage: 1 G, DAILY
     Route: 048

REACTIONS (11)
  - Drug withdrawal syndrome [Fatal]
  - Medical device site infection [Unknown]
  - Malaise [Unknown]
  - Skin irritation [Not Recovered/Not Resolved]
  - Myocardial infarction [Unknown]
  - Medical device site inflammation [Unknown]
  - Skin erosion [Not Recovered/Not Resolved]
  - Drug hypersensitivity [Fatal]
  - Multi-organ failure [Fatal]
  - Anaphylactic shock [Fatal]
  - Sepsis [Unknown]

NARRATIVE: CASE EVENT DATE: 201501
